FAERS Safety Report 13664247 (Version 1)
Quarter: 2017Q2

REPORT INFORMATION
  Report Type: Report from Study
  Country: ES (occurrence: ES)
  Receive Date: 20170619
  Receipt Date: 20170619
  Transmission Date: 20170830
  Serious: Yes (Death, Hospitalization)
  Sender: FDA-Public Use
  Company Number: ES-CELGENEUS-ESP-2015024184

PATIENT
  Age: 66 Year
  Sex: Male
  Weight: 66.5 kg

DRUGS (11)
  1. AZACITIDINE INJECTABLE [Suspect]
     Active Substance: AZACITIDINE
     Dosage: 18.75 MILLIGRAM/SQ. METER
     Route: 041
     Dates: start: 20141103
  2. PIPERACILLIN [Concomitant]
     Active Substance: PIPERACILLIN
     Indication: FEBRILE NEUTROPENIA
     Dosage: 12 GRAM
     Route: 048
     Dates: start: 20141204, end: 20141212
  3. DEPAKINE [Suspect]
     Active Substance: VALPROATE SODIUM
     Indication: MYELODYSPLASTIC SYNDROME
     Dosage: 7.1429 MILLIGRAM/SQ. METER
     Route: 048
     Dates: start: 20140731
  4. AMPHOTERICIN [Concomitant]
     Active Substance: AMPHOTERICIN B
     Indication: FUNGAL INFECTION
     Dosage: 6 MILLIGRAM/KILOGRAM
     Route: 065
     Dates: start: 20141206, end: 20141212
  5. ARA-C [Suspect]
     Active Substance: CYTARABINE
     Indication: MYELODYSPLASTIC SYNDROME
     Route: 065
     Dates: start: 20140731
  6. ARA-C [Suspect]
     Active Substance: CYTARABINE
     Route: 065
     Dates: start: 20141206, end: 20141210
  7. IDARUBICIN [Suspect]
     Active Substance: IDARUBICIN
     Indication: MYELODYSPLASTIC SYNDROME
     Route: 065
     Dates: start: 20140731
  8. AZACITIDINE INJECTABLE [Suspect]
     Active Substance: AZACITIDINE
     Indication: MYELODYSPLASTIC SYNDROME
     Dosage: 18.75 MILLIGRAM/SQ. METER
     Route: 041
     Dates: start: 20140731
  9. DEPAKINE [Suspect]
     Active Substance: VALPROATE SODIUM
     Dosage: 7.1429 MILLIGRAM/SQ. METER
     Route: 048
     Dates: start: 20141103
  10. IDARUBICIN [Suspect]
     Active Substance: IDARUBICIN
     Route: 065
     Dates: start: 20141206, end: 20141210
  11. TAZOBACTAM [Concomitant]
     Active Substance: TAZOBACTAM
     Indication: FEBRILE NEUTROPENIA
     Dosage: 1.5 GRAM
     Route: 048
     Dates: start: 20141204, end: 20141212

REACTIONS (3)
  - Acute myeloid leukaemia [Fatal]
  - Pneumonia [Fatal]
  - Intestinal obstruction [Not Recovered/Not Resolved]

NARRATIVE: CASE EVENT DATE: 20141124
